FAERS Safety Report 9165793 (Version 1)
Quarter: 2013Q1

REPORT INFORMATION
  Report Type: Spontaneous
  Country: GB (occurrence: None)
  Receive Date: 20130304
  Receipt Date: 20130304
  Transmission Date: 20140127
  Serious: Yes (Other)
  Sender: FDA-Public Use
  Company Number: GER/UKI/13/0028264

PATIENT
  Age: 70 Year
  Sex: Female

DRUGS (7)
  1. AMLODIPINE (AMLODIPINE) [Suspect]
     Indication: HYPERTENSION
     Route: 048
     Dates: start: 201108
  2. ATENOLOL (ATENOLOL) [Concomitant]
  3. LANSOPRAZOLE (LANSOPRAZOLE) [Concomitant]
  4. LEVOTHYROXINE (LEVOTHYROXINE) [Concomitant]
  5. QUININE (QUININE BISULFATE) [Concomitant]
  6. RAMIPRIL (RAMIPRIL) [Concomitant]
  7. SIMVASTATIN (SIMVASTATIN) [Concomitant]

REACTIONS (6)
  - Malaise [None]
  - Headache [None]
  - Lethargy [None]
  - Withdrawal syndrome [None]
  - Nasopharyngitis [None]
  - Gingival hyperplasia [None]
